FAERS Safety Report 8014137-1 (Version None)
Quarter: 2011Q4

REPORT INFORMATION
  Report Type: 
  Country: None (occurrence: None)
  Receive Date: 20111229
  Receipt Date: 20111226
  Transmission Date: 20120403
  Serious: Yes (Death, Life-Threatening, Hospitalization, Other)
  Sender: FDA-Public Use
  Company Number: JP-BAYER-201013295BYL

PATIENT
  Age: 81 Year
  Sex: Male
  Weight: 45.805 kg

DRUGS (16)
  1. NEXAVAR [Suspect]
     Indication: HEPATIC NEOPLASM MALIGNANT
     Dosage: 400 MG, QD
     Route: 048
     Dates: start: 20100610, end: 20100622
  2. LOSARTAN POTASSIUM [Concomitant]
     Dosage: DAILY DOSE 50 MG
     Route: 048
  3. METILON [Concomitant]
     Dosage: DAILY DOSE .5 DF
     Route: 030
     Dates: start: 20100620, end: 20100620
  4. METILON [Concomitant]
     Dosage: DAILY DOSE .5 DF
     Route: 030
     Dates: start: 20100709, end: 20100709
  5. NEXAVAR [Suspect]
     Dosage: 400 MG, QOD
     Route: 048
     Dates: start: 20100624, end: 20100625
  6. UREPEARL [Concomitant]
     Indication: PROPHYLAXIS
     Dosage: UNK
     Route: 061
     Dates: start: 20100610, end: 20100625
  7. METILON [Concomitant]
     Dosage: DAILY DOSE 1 DF
     Route: 030
     Dates: start: 20100717, end: 20100717
  8. METILON [Concomitant]
     Dosage: DAILY DOSE 1 DF
     Route: 030
     Dates: start: 20100621, end: 20100625
  9. HIRUDOID [Concomitant]
     Indication: PROPHYLAXIS
     Dosage: UNK
     Route: 061
     Dates: start: 20100524, end: 20100625
  10. METILON [Concomitant]
     Dosage: DAILY DOSE 1 DF
     Route: 030
     Dates: start: 20100720, end: 20100720
  11. URSO 250 [Concomitant]
     Dosage: DAILY DOSE 600 MG
     Route: 048
  12. MAGMITT [Concomitant]
     Dosage: DAILY DOSE 990 MG
     Route: 048
  13. PANTOSIN [Concomitant]
     Dosage: DAILY DOSE 3 G
     Route: 048
  14. METILON [Concomitant]
     Dosage: DAILY DOSE .5 DF
     Route: 030
     Dates: start: 20100614, end: 20100615
  15. ANTIANAEMIC PREPARATIONS [Concomitant]
     Dosage: DAILY DOSE 1 DF
     Route: 042
     Dates: start: 20100628, end: 20100721
  16. AMINOLEBAN [Concomitant]
     Dosage: DAILY DOSE 200 ML
     Route: 042
     Dates: start: 20100705, end: 20100721

REACTIONS (11)
  - DISSEMINATED INTRAVASCULAR COAGULATION [None]
  - HEPATIC FUNCTION ABNORMAL [None]
  - BLOOD AMYLASE INCREASED [None]
  - AMMONIA INCREASED [None]
  - PYREXIA [None]
  - HEPATIC NEOPLASM MALIGNANT [None]
  - CARDIAC FAILURE ACUTE [None]
  - ASCITES [None]
  - LIPASE INCREASED [None]
  - ANAEMIA [None]
  - PLATELET COUNT DECREASED [None]
